FAERS Safety Report 10014593 (Version 2)
Quarter: 2014Q3

REPORT INFORMATION
  Report Type: Spontaneous
  Country: JP (occurrence: JP)
  Receive Date: 20140317
  Receipt Date: 20140801
  Transmission Date: 20150326
  Serious: Yes (Death, Life-Threatening, Hospitalization, Other)
  Sender: FDA-Public Use
  Company Number: JP-BAYER-2014-039670

PATIENT
  Age: 42 Year
  Sex: Female
  Weight: 40 kg

DRUGS (27)
  1. OMEPRAZOLE. [Concomitant]
     Active Substance: OMEPRAZOLE
     Indication: GASTROINTESTINAL DISORDER
     Dosage: DAILY DOSE 20 MG
     Dates: start: 20140315, end: 20140319
  2. MAGLAX [Concomitant]
     Active Substance: MAGNESIUM OXIDE
     Indication: CONSTIPATION
  3. MORPHINE HYDROCHLORIDE [Suspect]
     Active Substance: MORPHINE HYDROCHLORIDE
     Indication: CANCER PAIN
     Dosage: DAILY DOSE 200 MG
     Dates: start: 20140322, end: 20140327
  4. INDERAL [Suspect]
     Active Substance: PROPRANOLOL HYDROCHLORIDE
     Indication: ASCITES
     Dosage: DAILY DOSE 20 MG
     Route: 048
     Dates: end: 20140310
  5. FENTANYL CITRATE. [Concomitant]
     Active Substance: FENTANYL CITRATE
     Indication: CANCER PAIN
     Dosage: DAILY DOSE 6 MG
     Route: 062
     Dates: start: 20140305, end: 20140327
  6. REBAMIPIDE [Concomitant]
     Active Substance: REBAMIPIDE
     Indication: GASTROINTESTINAL DISORDER
     Dosage: DAILY DOSE 300 MG
     Route: 048
     Dates: end: 20140310
  7. TRICHLORMETHIAZIDE [Concomitant]
     Active Substance: TRICHLORMETHIAZIDE
     Indication: COLON CANCER
     Dosage: DAILY DOSE 2 MG
     Route: 048
     Dates: start: 2014, end: 20140310
  8. HICALIQ [Concomitant]
     Indication: GENERAL PHYSICAL HEALTH DETERIORATION
     Dosage: DAILY DOSE 500 ML
     Dates: start: 20140315, end: 20140317
  9. PRIMPERAN [Concomitant]
     Active Substance: METOCLOPRAMIDE HYDROCHLORIDE
     Indication: ENDOSCOPIC RETROGRADE CHOLANGIOPANCREATOGRAPHY
     Dosage: DAILY DOSE 5 MG
     Route: 048
     Dates: start: 20140310, end: 20140310
  10. FUROSEMIDE. [Concomitant]
     Active Substance: FUROSEMIDE
     Indication: COLON CANCER
     Dosage: DAILY DOSE 40 MG
     Route: 048
     Dates: end: 20140310
  11. FENTANYL CITRATE. [Concomitant]
     Active Substance: FENTANYL CITRATE
     Indication: COLON CANCER
     Dosage: DAILY DOSE 4 MG
     Route: 062
     Dates: end: 20140304
  12. REBAMIPIDE [Concomitant]
     Active Substance: REBAMIPIDE
     Indication: GASTROINTESTINAL DISORDER
     Dosage: DAILY DOSE 300 MG
     Route: 048
     Dates: start: 20140312, end: 20140324
  13. SPIRONOLACTONE. [Suspect]
     Active Substance: SPIRONOLACTONE
     Indication: COLON CANCER
     Dosage: DAILY DOSE 100 MG
     Route: 048
     Dates: end: 20140310
  14. SOLDACTONE [Concomitant]
     Active Substance: CANRENOATE POTASSIUM
     Indication: COLON CANCER
     Dosage: DAILY DOSE 100 MG
     Dates: start: 20140315, end: 20140315
  15. POLAPREZINC [Concomitant]
     Indication: GASTROINTESTINAL DISORDER
     Dosage: DAILY DOSE 150 MG
     Route: 048
     Dates: end: 20140310
  16. STIVARGA [Suspect]
     Active Substance: REGORAFENIB
     Indication: COLORECTAL CANCER
     Dosage: 160 MG, QD
     Route: 048
     Dates: start: 20140207, end: 20140227
  17. MORPHINE HYDROCHLORIDE [Suspect]
     Active Substance: MORPHINE HYDROCHLORIDE
     Indication: COLON CANCER
     Dosage: DAILY DOSE 50 MG
     Dates: start: 20140315, end: 20140321
  18. GENTAMICIN SULFATE [Concomitant]
     Active Substance: GENTAMICIN SULFATE
     Indication: DRUG TOXICITY PROPHYLAXIS
     Dosage: UNK
     Route: 061
     Dates: start: 20140207, end: 20140227
  19. PRIMPERAN [Concomitant]
     Active Substance: METOCLOPRAMIDE HYDROCHLORIDE
     Indication: ENDOSCOPIC RETROGRADE CHOLANGIOPANCREATOGRAPHY
     Dosage: DAILY DOSE 5 MG
     Route: 048
     Dates: start: 20140306, end: 20140306
  20. LOXONIN [Concomitant]
     Active Substance: LOXOPROFEN SODIUM
     Indication: COLON CANCER
     Dosage: DAILY DOSE 180 MG
     Route: 048
     Dates: start: 20140312, end: 20140324
  21. MAGLAX [Concomitant]
     Active Substance: MAGNESIUM OXIDE
     Indication: COLON CANCER
     Dosage: DAILY DOSE 990 MG
     Route: 048
     Dates: end: 20140310
  22. VERAPAMIL HCL [Concomitant]
     Active Substance: VERAPAMIL HYDROCHLORIDE
     Indication: COLON CANCER
     Dosage: UNK
     Route: 054
     Dates: start: 20140304, end: 20140304
  23. INDERAL [Suspect]
     Active Substance: PROPRANOLOL HYDROCHLORIDE
     Indication: COLON CANCER
     Dosage: DAILY DOSE 30 MG
     Route: 048
     Dates: start: 20140311, end: 20140324
  24. SEISHOKU [Concomitant]
     Active Substance: SODIUM CHLORIDE
     Dosage: DAILY DOSE 20 ML
     Dates: start: 20140315, end: 20140319
  25. LAFUTIDINE [Concomitant]
     Active Substance: LAFUTIDINE
     Indication: GASTROINTESTINAL DISORDER
     Dosage: DAILY DOSE 20 MG
     Route: 048
     Dates: end: 20140310
  26. LOXONIN [Concomitant]
     Active Substance: LOXOPROFEN SODIUM
     Indication: PAIN
     Dosage: DAILY DOSE 180 MG
     Route: 048
     Dates: end: 20140310
  27. VERAPAMIL HCL [Concomitant]
     Active Substance: VERAPAMIL HYDROCHLORIDE
     Indication: COLON CANCER
     Dosage: DAILY DOSE 10 MG
     Route: 054
     Dates: start: 20140307, end: 20140308

REACTIONS (19)
  - Melaena [Recovered/Resolved]
  - Dyspnoea [Not Recovered/Not Resolved]
  - Glomerular filtration rate decreased [Not Recovered/Not Resolved]
  - Nausea [Recovered/Resolved]
  - Jaundice [Fatal]
  - Alanine aminotransferase increased [Fatal]
  - Aspartate aminotransferase increased [Fatal]
  - Back pain [Not Recovered/Not Resolved]
  - Dehydration [Not Recovered/Not Resolved]
  - Vomiting [Recovered/Resolved]
  - Blood bilirubin increased [Fatal]
  - Blood potassium increased [Recovered/Resolved]
  - Bilirubin conjugated increased [Fatal]
  - Blood lactate dehydrogenase increased [Not Recovered/Not Resolved]
  - Blood urea increased [Not Recovered/Not Resolved]
  - White blood cell count increased [Not Recovered/Not Resolved]
  - Malaise [Not Recovered/Not Resolved]
  - Abdominal pain [Not Recovered/Not Resolved]
  - Platelet count decreased [Not Recovered/Not Resolved]

NARRATIVE: CASE EVENT DATE: 20140207
